FAERS Safety Report 10058687 (Version 4)
Quarter: 2014Q2

REPORT INFORMATION
  Report Type: Spontaneous
  Country: JP (occurrence: JP)
  Receive Date: 20140404
  Receipt Date: 20140612
  Transmission Date: 20141212
  Serious: Yes (Death, Hospitalization, Other)
  Sender: FDA-Public Use
  Company Number: JP-JNJFOC-20140402229

PATIENT
  Age: 73 Year
  Sex: Female
  Weight: 65 kg

DRUGS (19)
  1. PREDNISOLONE [Suspect]
     Indication: RHEUMATOID ARTHRITIS
     Route: 048
     Dates: start: 2006
  2. PREDNISOLONE [Suspect]
     Indication: RHEUMATOID ARTHRITIS
     Dosage: PULSE THERAPY
     Route: 048
     Dates: start: 20140315, end: 20140317
  3. PREDNISOLONE [Suspect]
     Indication: RHEUMATOID ARTHRITIS
     Route: 048
     Dates: start: 201401, end: 2014
  4. FOLIAMIN [Concomitant]
     Indication: PROPHYLAXIS
     Route: 048
     Dates: start: 2006, end: 20140307
  5. ACTONEL [Concomitant]
     Indication: OSTEOPOROSIS
     Route: 048
     Dates: end: 20140315
  6. GLUFAST [Concomitant]
     Indication: DIABETES MELLITUS
     Route: 048
     Dates: end: 20140315
  7. METGLUCO [Concomitant]
     Indication: DIABETES MELLITUS
     Route: 048
     Dates: end: 20140315
  8. NORVASC [Concomitant]
     Indication: HYPERTENSION
     Route: 048
     Dates: end: 20140315
  9. AZILSARTAN [Concomitant]
     Indication: HYPERTENSION
     Route: 048
     Dates: end: 20140315
  10. CARDENALIN [Concomitant]
     Indication: HYPERTENSION
     Route: 048
     Dates: end: 20140315
  11. FLUITRAN [Concomitant]
     Indication: HYPERTENSION
     Route: 048
     Dates: end: 20140315
  12. TAKEPRON [Concomitant]
     Indication: GASTRIC ULCER
     Route: 048
     Dates: end: 20140315
  13. LOXONIN [Concomitant]
     Indication: RHEUMATOID ARTHRITIS
     Route: 048
     Dates: end: 20140315
  14. MUCOSTA [Concomitant]
     Indication: GASTRIC ULCER
     Route: 048
     Dates: end: 20140315
  15. SIMPONI [Suspect]
     Indication: RHEUMATOID ARTHRITIS
     Route: 058
     Dates: start: 20131125, end: 20140217
  16. RHEUMATREX [Suspect]
     Indication: RHEUMATOID ARTHRITIS
     Route: 048
     Dates: start: 20060801, end: 20140307
  17. PREDNISOLONE [Suspect]
     Indication: RHEUMATOID ARTHRITIS
     Route: 048
     Dates: end: 201401
  18. PREDNISOLONE [Suspect]
     Indication: RHEUMATOID ARTHRITIS
     Route: 048
     Dates: start: 20140314, end: 20140314
  19. PREDNISOLONE [Suspect]
     Indication: RHEUMATOID ARTHRITIS
     Route: 048
     Dates: start: 2014, end: 20140314

REACTIONS (8)
  - Organising pneumonia [Fatal]
  - Anaemia [Not Recovered/Not Resolved]
  - Tachycardia paroxysmal [Recovered/Resolved]
  - Dizziness postural [Recovered/Resolved]
  - Dizziness [Recovered/Resolved]
  - Hypotension [Recovered/Resolved]
  - Blood urea increased [Recovered/Resolved]
  - Hypoalbuminaemia [Not Recovered/Not Resolved]
